FAERS Safety Report 21146680 (Version 4)
Quarter: 2022Q4

REPORT INFORMATION
  Report Type: Spontaneous
  Country: US (occurrence: None)
  Receive Date: 20220729
  Receipt Date: 20221102
  Transmission Date: 20230113
  Serious: Yes (Disabling)
  Sender: FDA-Public Use
  Company Number: US-ROCHE-3147396

PATIENT
  Age: 77 Year
  Sex: Female

DRUGS (10)
  1. SUSVIMO [Suspect]
     Active Substance: RANIBIZUMAB
     Indication: Neovascular age-related macular degeneration
     Dosage: NO
     Route: 065
     Dates: start: 20220719, end: 20220721
  2. SUSVIMO [Suspect]
     Active Substance: RANIBIZUMAB
  3. SUSVIMO [Suspect]
     Active Substance: RANIBIZUMAB
  4. SUSVIMO [Suspect]
     Active Substance: RANIBIZUMAB
  5. XIIDRA [Concomitant]
     Active Substance: LIFITEGRAST
     Dosage: 1 DROP
  6. RETAINE MGD [Concomitant]
     Active Substance: LIGHT MINERAL OIL\MINERAL OIL
  7. METOPROLOL TARTRATE [Concomitant]
     Active Substance: METOPROLOL TARTRATE
     Dosage: UNKNOWN
     Route: 065
  8. XANAX XR [Concomitant]
     Active Substance: ALPRAZOLAM
     Dosage: UNKNOWN
     Route: 065
  9. WELLBUTRIN [Concomitant]
     Active Substance: BUPROPION HYDROCHLORIDE
     Route: 048
  10. WELLBUTRIN [Concomitant]
     Active Substance: BUPROPION HYDROCHLORIDE
     Route: 048

REACTIONS (4)
  - Eye prosthesis removal [Unknown]
  - Endophthalmitis [Recovering/Resolving]
  - Blindness [Not Recovered/Not Resolved]
  - Visual acuity reduced [Unknown]

NARRATIVE: CASE EVENT DATE: 20220720
